FAERS Safety Report 9957364 (Version 2)
Quarter: 2014Q1

REPORT INFORMATION
  Report Type: Report from Study
  Country: US (occurrence: US)
  Receive Date: 20140304
  Receipt Date: 20140304
  Transmission Date: 20141002
  Serious: No
  Sender: FDA-Public Use
  Company Number: US-ABBVIE-13P-163-1079789-00

PATIENT
  Age: 63 Year
  Sex: Male
  Weight: 95.34 kg

DRUGS (3)
  1. HUMIRA [Suspect]
     Indication: PSORIATIC ARTHROPATHY
     Dates: start: 201212
  2. HUMIRA [Suspect]
     Indication: PSORIASIS
  3. TACLONEX [Concomitant]
     Indication: PSORIASIS

REACTIONS (1)
  - Drug ineffective [Not Recovered/Not Resolved]
